FAERS Safety Report 6546795-2 (Version None)
Quarter: 2010Q1

REPORT INFORMATION
  Report Type: 
  Country: None (occurrence: None)
  Receive Date: 20100119
  Receipt Date: 20091106
  Transmission Date: 20100710
  Serious: Yes (Death, Hospitalization)
  Sender: FDA-Public Use
  Company Number: A-US2009-28125

PATIENT
  Age: 65 Year
  Sex: Female

DRUGS (3)
  1. TRACLEER [Suspect]
     Indication: PULMONARY ARTERIAL HYPERTENSION
     Dosage: ORAL
     Route: 048
     Dates: start: 20041126
  2. FLOLAN [Concomitant]
  3. REVATIO [Concomitant]

REACTIONS (3)
  - DYSPNOEA [None]
  - FLUID RETENTION [None]
  - RIGHT VENTRICULAR FAILURE [None]
